FAERS Safety Report 16424788 (Version 1)
Quarter: 2019Q2

REPORT INFORMATION
  Report Type: Spontaneous
  Country: CA (occurrence: CA)
  Receive Date: 20190613
  Receipt Date: 20190613
  Transmission Date: 20190711
  Serious: Yes (Other)
  Sender: FDA-Public Use
  Company Number: CA-PFIZER INC-2019253564

PATIENT
  Age: 64 Year
  Sex: Female

DRUGS (10)
  1. DOMPERIDONE MALEATE [Concomitant]
     Active Substance: DOMPERIDONE MALEATE
     Dosage: 10 MG, 4X/DAY
     Route: 048
  2. ESTROGEL [Concomitant]
     Active Substance: ESTRADIOL
     Dosage: 0.12 %, UNK
     Route: 061
  3. TIMOLOL. [Concomitant]
     Active Substance: TIMOLOL
     Dosage: 1.0 GTT, 1X/DAY
     Route: 047
  4. ATORVASTATIN [Concomitant]
     Active Substance: ATORVASTATIN
     Dosage: 10 MG, UNK
     Route: 048
  5. SALBUTAMOL [Concomitant]
     Active Substance: ALBUTEROL
     Dosage: 100 UG, UNK
  6. ESOMEPRAZOLE MAGNESIUM TRIHYDRATE [Concomitant]
     Active Substance: ESOMEPRAZOLE MAGNESIUM
     Dosage: 40 MG, UNK
  7. VENLAFAXINE HCL [Suspect]
     Active Substance: VENLAFAXINE HYDROCHLORIDE
     Indication: DEPRESSION
     Dosage: 37.5 MG, 1X/DAY
     Route: 048
  8. ALENDRONATE D3 [Concomitant]
     Dosage: 1 DF, 1X/DAY
  9. CALCITE + D [Concomitant]
     Dosage: 400 MG, 2X/DAY
  10. DULOXETINE HYDROCHLORIDE. [Interacting]
     Active Substance: DULOXETINE HYDROCHLORIDE
     Indication: DEPRESSION
     Dosage: 60 MG, 1X/DAY
     Route: 048

REACTIONS (2)
  - Drug interaction [Unknown]
  - Hypertension [Unknown]
